FAERS Safety Report 11828242 (Version 2)
Quarter: 2017Q1

REPORT INFORMATION
  Report Type: Spontaneous
  Country: US (occurrence: US)
  Receive Date: 20151211
  Receipt Date: 20170224
  Transmission Date: 20170428
  Serious: Yes (Other)
  Sender: FDA-Public Use
  Company Number: US-ELI_LILLY_AND_COMPANY-US201512000756

PATIENT
  Sex: Female
  Weight: 89.34 kg

DRUGS (4)
  1. CYMBALTA [Suspect]
     Active Substance: DULOXETINE HYDROCHLORIDE
     Indication: PAIN
     Dosage: UNK, UNKNOWN
     Route: 065
     Dates: start: 20110121
  2. CYMBALTA [Suspect]
     Active Substance: DULOXETINE HYDROCHLORIDE
     Indication: FIBROMYALGIA
  3. CYMBALTA [Suspect]
     Active Substance: DULOXETINE HYDROCHLORIDE
     Indication: DEPRESSION
     Dosage: 60 MG, QD
     Route: 065
     Dates: start: 20110218
  4. BENICAR HCT [Concomitant]
     Active Substance: HYDROCHLOROTHIAZIDE\OLMESARTAN MEDOXOMIL
     Dosage: UNK, QD
     Route: 048

REACTIONS (24)
  - Migraine [Unknown]
  - Disturbance in attention [Unknown]
  - Suicidal ideation [Unknown]
  - Irritability [Unknown]
  - Confusional state [Unknown]
  - Cerebrovascular accident [Unknown]
  - Dysphoria [Unknown]
  - Dizziness [Unknown]
  - Affect lability [Unknown]
  - Memory impairment [Unknown]
  - Tremor [Unknown]
  - Paraesthesia [Unknown]
  - Hyperhidrosis [Unknown]
  - Drug withdrawal syndrome [Unknown]
  - Anxiety [Unknown]
  - Headache [Unknown]
  - Nausea [Unknown]
  - Insomnia [Unknown]
  - Influenza like illness [Unknown]
  - Sensory disturbance [Unknown]
  - Agitation [Unknown]
  - Aggression [Unknown]
  - Fatigue [Unknown]
  - Diarrhoea [Unknown]
